FAERS Safety Report 16621555 (Version 1)
Quarter: 2019Q3

REPORT INFORMATION
  Report Type: Spontaneous
  Country: US (occurrence: US)
  Receive Date: 20190723
  Receipt Date: 20190723
  Transmission Date: 20191004
  Serious: No
  Sender: FDA-Public Use
  Company Number: US-OTSUKA-2018_030776

PATIENT
  Age: 46 Year
  Sex: Female

DRUGS (1)
  1. REXULTI [Suspect]
     Active Substance: BREXPIPRAZOLE
     Indication: ANXIETY
     Dosage: 0.5 MG, UNK
     Route: 065
     Dates: start: 20180818

REACTIONS (2)
  - Product use in unapproved indication [Unknown]
  - Product packaging quantity issue [Unknown]

NARRATIVE: CASE EVENT DATE: 20180818
